FAERS Safety Report 23026179 (Version 1)
Quarter: 2023Q4

REPORT INFORMATION
  Report Type: Spontaneous
  Country: ES (occurrence: ES)
  Receive Date: 20231004
  Receipt Date: 20231004
  Transmission Date: 20240110
  Serious: Yes (Hospitalization, Other)
  Sender: FDA-Public Use
  Company Number: ES-BELPHARMA-2023000156

PATIENT
  Age: 63 Year
  Sex: Male

DRUGS (3)
  1. QUETIAPINE [Suspect]
     Active Substance: QUETIAPINE
     Indication: Insomnia
     Dosage: 50 MILLIGRAM, ONCE A DAY
     Route: 065
  2. PIMOZIDE [Suspect]
     Active Substance: PIMOZIDE
     Indication: Schizophrenia
     Dosage: 4 MILLIGRAM, ONCE A DAY (4 MG/DAY, THEN 10 MONTHS LATER 8 MG/DAY)
     Route: 048
  3. PIMOZIDE [Suspect]
     Active Substance: PIMOZIDE
     Dosage: 8 MILLIGRAM, ONCE A DAY (4 MG/DAY, THEN 10 MONTHS LATER 8 MG/DAY)
     Route: 048

REACTIONS (12)
  - Colitis ischaemic [Unknown]
  - Cachexia [Recovered/Resolved]
  - Decreased appetite [Recovered/Resolved]
  - Parkinsonism [Recovered/Resolved]
  - Muscle rigidity [Recovered/Resolved]
  - Weight decreased [Recovered/Resolved]
  - Bradykinesia [Recovered/Resolved]
  - Bradyphrenia [Recovered/Resolved]
  - Dysphonia [Recovered/Resolved]
  - Dysphagia [Unknown]
  - Salivary hypersecretion [Unknown]
  - Hypotension [Unknown]
